FAERS Safety Report 7517110-2 (Version None)
Quarter: 2011Q2

REPORT INFORMATION
  Report Type: 
  Country: None (occurrence: None)
  Receive Date: 20110601
  Receipt Date: 20110519
  Transmission Date: 20111010
  Serious: Yes (Death)
  Sender: FDA-Public Use
  Company Number: US-UCBSA-033258

PATIENT
  Sex: Female

DRUGS (1)
  1. CIMZIA [Suspect]
     Indication: CROHN'S DISEASE
     Route: 063

REACTIONS (2)
  - DRUG EXPOSURE VIA BREAST MILK [None]
  - SUDDEN INFANT DEATH SYNDROME [None]
